FAERS Safety Report 24122171 (Version 1)
Quarter: 2024Q3

REPORT INFORMATION
  Report Type: Report from Study
  Country: AU (occurrence: AU)
  Receive Date: 20240722
  Receipt Date: 20240722
  Transmission Date: 20241017
  Serious: Yes (Death)
  Sender: CSL BEHRING
  Company Number: AU-BEH-2024175775

PATIENT
  Sex: Male
  Weight: 84 kg

DRUGS (12)
  1. HIZENTRA [Suspect]
     Active Substance: HUMAN IMMUNOGLOBULIN G
     Indication: Chronic inflammatory demyelinating polyradiculoneuropathy
     Dosage: 8 G, QW
     Route: 058
  2. SYSTANE (HYPROMELLOSE 2910 (4000 MPA.S)) [Concomitant]
     Active Substance: HYPROMELLOSE 2910 (4000 MPA.S)
  3. VITAMIN D [Concomitant]
     Active Substance: VITAMIN D NOS
  4. ALLOPURINOL [Concomitant]
     Active Substance: ALLOPURINOL
  5. WARFARIN [Concomitant]
     Active Substance: WARFARIN
  6. MAGNESIUM [Concomitant]
     Active Substance: MAGNESIUM
  7. PANADOL [Concomitant]
     Active Substance: ACETAMINOPHEN
  8. POLYVISC EYE [Concomitant]
  9. DULOXETINE [Concomitant]
     Active Substance: DULOXETINE
  10. NALOXONE HYDROCHLORIDE\OXYCODONE HYDROCHLORIDE [Concomitant]
     Active Substance: NALOXONE HYDROCHLORIDE\OXYCODONE HYDROCHLORIDE
  11. UNGVITA [Concomitant]
  12. LANOLIN\LIGHT MINERAL OIL\PARAFFIN [Concomitant]
     Active Substance: LANOLIN\LIGHT MINERAL OIL\PARAFFIN

REACTIONS (1)
  - Death [Fatal]

NARRATIVE: CASE EVENT DATE: 20240101
